FAERS Safety Report 5247707-4 (Version None)
Quarter: 2007Q1

REPORT INFORMATION
  Report Type: 
  Country: None (occurrence: None)
  Receive Date: 20070227
  Receipt Date: 20070220
  Transmission Date: 20070707
  Serious: Yes (Other)
  Sender: FDA-Public Use
  Company Number: GB-ELI_LILLY_AND_COMPANY-GB200702004294

PATIENT
  Sex: Male

DRUGS (2)
  1. CIALIS [Suspect]
  2. PROPRANOLOL [Concomitant]

REACTIONS (1)
  - ARTERIAL RUPTURE [None]
